FAERS Safety Report 26050954 (Version 1)
Quarter: 2025Q4

REPORT INFORMATION
  Report Type: Spontaneous
  Country: CN (occurrence: CN)
  Receive Date: 20251117
  Receipt Date: 20251117
  Transmission Date: 20260118
  Serious: Yes (Hospitalization)
  Sender: ALEXION PHARMACEUTICALS
  Company Number: CN-ASTRAZENECA-202511CHN008767CN

PATIENT
  Age: 34 Year
  Sex: Female

DRUGS (1)
  1. OSIMERTINIB [Suspect]
     Active Substance: OSIMERTINIB
     Indication: Lung neoplasm malignant
     Dosage: 80 MILLIGRAM, QD
     Dates: start: 20250901, end: 20251031

REACTIONS (2)
  - Drug eruption [Recovering/Resolving]
  - Dermatitis infected [Recovering/Resolving]

NARRATIVE: CASE EVENT DATE: 20251101
